FAERS Safety Report 8071883-1 (Version None)
Quarter: 2012Q1

REPORT INFORMATION
  Report Type: 
  Country: None (occurrence: None)
  Receive Date: 20120126
  Receipt Date: 20120120
  Transmission Date: 20120608
  Serious: No
  Sender: FDA-Public Use
  Company Number: US-BIOGENIDEC-2012BI002502

PATIENT
  Age: 53 Year
  Sex: Female

DRUGS (1)
  1. AVONEX [Suspect]
     Indication: MULTIPLE SCLEROSIS
     Route: 030
     Dates: start: 20120111

REACTIONS (12)
  - BACK PAIN [None]
  - EYE DISORDER [None]
  - CHEST DISCOMFORT [None]
  - NAUSEA [None]
  - DYSPNOEA [None]
  - HEARING IMPAIRED [None]
  - HEADACHE [None]
  - ASTHENIA [None]
  - FATIGUE [None]
  - HYPOAESTHESIA [None]
  - HYPOAESTHESIA ORAL [None]
  - VOMITING [None]
